FAERS Safety Report 7988393-X (Version None)
Quarter: 2011Q4

REPORT INFORMATION
  Report Type: 
  Country: None (occurrence: None)
  Receive Date: 20111216
  Receipt Date: 20111202
  Transmission Date: 20120403
  Serious: Yes (Death, Hospitalization)
  Sender: FDA-Public Use
  Company Number: DE-JUTA GMBH-2011-21239

PATIENT
  Age: 78 Year
  Sex: Female

DRUGS (4)
  1. BENAZEPRIL HYDROCHLORIDE [Suspect]
     Indication: SUICIDAL IDEATION
  2. ISOSORBIDE MONONITRATE [Suspect]
     Indication: SUICIDAL IDEATION
     Dosage: UNK
  3. MIRTAZAPINE [Suspect]
     Indication: SUICIDAL IDEATION
     Dosage: UNK
  4. AMLODIPINE [Suspect]
     Indication: SUICIDAL IDEATION

REACTIONS (3)
  - INTESTINAL ISCHAEMIA [None]
  - VASODILATATION [None]
  - CARDIAC FAILURE [None]
